FAERS Safety Report 17629567 (Version 7)
Quarter: 2022Q1

REPORT INFORMATION
  Report Type: Spontaneous
  Country: US (occurrence: US)
  Receive Date: 20200406
  Receipt Date: 20220309
  Transmission Date: 20220423
  Serious: Yes (Other)
  Sender: FDA-Public Use
  Company Number: US-PFIZER INC-2020096033

PATIENT
  Age: 73 Year
  Sex: Female
  Weight: 47.17 kg

DRUGS (3)
  1. PREMARIN [Suspect]
     Active Substance: ESTROGENS, CONJUGATED
     Dosage: UNK
  2. PREMARIN [Suspect]
     Active Substance: ESTROGENS, CONJUGATED
     Dosage: 2.5 MG, DAILY (1.25MG TAKES 2 BY MOUTH DAILY)
     Route: 048
  3. PREMARIN [Suspect]
     Active Substance: ESTROGENS, CONJUGATED
     Dosage: 1.25 MG, 2X/DAY

REACTIONS (7)
  - Atrial fibrillation [Unknown]
  - Hypersensitivity [Unknown]
  - Hyperhidrosis [Unknown]
  - Off label use [Unknown]
  - Expired product administered [Unknown]
  - Product prescribing error [Unknown]
  - Intentional dose omission [Unknown]
